FAERS Safety Report 9567945 (Version 1)
Quarter: 2013Q3

REPORT INFORMATION
  Report Type: Spontaneous
  Country: US (occurrence: US)
  Receive Date: 20130930
  Receipt Date: 20130930
  Transmission Date: 20140515
  Serious: No
  Sender: FDA-Public Use
  Company Number: US-AMGEN-USASP2013032462

PATIENT
  Age: 53 Year
  Sex: Male

DRUGS (8)
  1. ENBREL [Suspect]
     Indication: PRODUCT USED FOR UNKNOWN INDICATION
     Dosage: 50 MG, QWK
     Route: 058
  2. BYSTOLIC [Concomitant]
     Dosage: 2.5 MG, UNK
  3. SIMVASTATIN [Concomitant]
     Dosage: 80 MG, UNK
  4. VITAMIN C                          /00008001/ [Concomitant]
     Dosage: 500 MG, SR
  5. FISH OIL [Concomitant]
     Dosage: 1200 MG, UNK
  6. VITAMIN B6 [Concomitant]
     Dosage: 250 MG, UNK
  7. BIOTIN [Concomitant]
     Dosage: 5000 MCG, UNK
  8. CALCIUM +D                         /07511201/ [Concomitant]
     Dosage: 600 MG, UNK

REACTIONS (4)
  - Myalgia [Unknown]
  - Cough [Unknown]
  - Visual acuity reduced [Unknown]
  - Injection site erythema [Unknown]
